FAERS Safety Report 9913281 (Version 1)
Quarter: 2014Q1

REPORT INFORMATION
  Report Type: Spontaneous
  Country: US (occurrence: None)
  Receive Date: 20140219
  Receipt Date: 20140219
  Transmission Date: 20141002
  Serious: Yes (Hospitalization)
  Sender: FDA-Public Use
  Company Number: None

PATIENT
  Age: 76 Year
  Sex: Female
  Weight: 63.6 kg

DRUGS (20)
  1. LISINOPRIL [Suspect]
     Indication: HYPERTENSION
     Route: 048
  2. LISINOPRIL [Suspect]
     Indication: CARDIAC FAILURE CONGESTIVE
     Route: 048
  3. NAMENDA [Concomitant]
  4. TRAZODONE [Concomitant]
  5. NYSTATIN [Concomitant]
  6. PLAVIX [Concomitant]
  7. NORVASC [Concomitant]
  8. PEPCID [Concomitant]
  9. PULMICORT [Concomitant]
  10. AMIODARONE [Concomitant]
  11. COREG [Concomitant]
  12. PRAVACHOL [Concomitant]
  13. DITROPAN [Concomitant]
  14. SYNTHROID [Concomitant]
  15. LEXAPRO [Concomitant]
  16. LYRICA [Concomitant]
  17. DUONEB [Concomitant]
  18. ARICEPT [Concomitant]
  19. VITAMIN D [Concomitant]
  20. NITROSTAT [Concomitant]

REACTIONS (1)
  - Swollen tongue [None]
